FAERS Safety Report 6031730-6 (Version None)
Quarter: 2008Q4

REPORT INFORMATION
  Report Type: 
  Country: None (occurrence: None)
  Receive Date: 20081224
  Receipt Date: 20080623
  Transmission Date: 20090506
  Serious: Yes (Other)
  Sender: FDA-Public Use
  Company Number: FEI2008-1185

PATIENT
  Age: 30 Year
  Sex: Female

DRUGS (2)
  1. PARAGARD T 380A [Suspect]
     Indication: CONTRACEPTION
     Dosage: INTRA-UTERINE, INTRA-UTERINE
     Route: 015
     Dates: start: 20071122, end: 20080620
  2. PARAGARD T 380A [Suspect]
     Indication: CONTRACEPTION
     Dosage: INTRA-UTERINE, INTRA-UTERINE
     Route: 015
     Dates: start: 20080620

REACTIONS (2)
  - ADNEXA UTERI MASS [None]
  - UTERINE RUPTURE [None]
